FAERS Safety Report 18465225 (Version 2)
Quarter: 2020Q4

REPORT INFORMATION
  Report Type: Spontaneous
  Country: TR (occurrence: TR)
  Receive Date: 20201104
  Receipt Date: 20201116
  Transmission Date: 20210114
  Serious: Yes (Death)
  Sender: FDA-Public Use
  Company Number: TR-INCYTE CORPORATION-2020IN010908

PATIENT

DRUGS (2)
  1. JAKAVI [Suspect]
     Active Substance: RUXOLITINIB
     Indication: GRAFT VERSUS HOST DISEASE IN LIVER
     Dosage: UNK
     Route: 065
  2. JAKAVI [Suspect]
     Active Substance: RUXOLITINIB
     Indication: GRAFT VERSUS HOST DISEASE IN GASTROINTESTINAL TRACT

REACTIONS (5)
  - Blood bilirubin increased [Unknown]
  - Product use in unapproved indication [Unknown]
  - Graft versus host disease in liver [Fatal]
  - Drug ineffective [Unknown]
  - Graft versus host disease in gastrointestinal tract [Fatal]
